FAERS Safety Report 5579068-5 (Version None)
Quarter: 2007Q4

REPORT INFORMATION
  Report Type: 
  Country: None (occurrence: None)
  Receive Date: 20071228
  Receipt Date: 20071228
  Transmission Date: 20080405
  Serious: Yes (Other)
  Sender: FDA-Public Use
  Company Number: None

PATIENT
  Age: 53 Year
  Sex: Male
  Weight: 85.7298 kg

DRUGS (2)
  1. ETHYOL [Suspect]
     Indication: PREMEDICATION
     Dosage: INJECTION  DAILY
     Dates: start: 20071203, end: 20071224
  2. ETHYOL [Suspect]
     Indication: RADIOTHERAPY
     Dosage: INJECTION  DAILY
     Dates: start: 20071203, end: 20071224

REACTIONS (3)
  - DRUG HYPERSENSITIVITY [None]
  - PRURITUS [None]
  - RASH GENERALISED [None]
